FAERS Safety Report 5017949-1 (Version None)
Quarter: 2006Q2

REPORT INFORMATION
  Report Type: 
  Country: None (occurrence: None)
  Receive Date: 20060605
  Receipt Date: 20060216
  Transmission Date: 20061013
  Serious: Yes (Hospitalization)
  Sender: FDA-Public Use
  Company Number: FR-GLAXOSMITHKLINE-B0412472A

PATIENT
  Age: 38 Year
  Sex: Female

DRUGS (5)
  1. CLAMOXYL [Suspect]
     Indication: TRACHEITIS
     Route: 048
     Dates: start: 20051228, end: 20060101
  2. HEPT-A-MYL [Suspect]
     Route: 048
     Dates: start: 20060103, end: 20060108
  3. IBUPROFEN [Suspect]
     Indication: RHINITIS
     Route: 048
     Dates: start: 20051226, end: 20060101
  4. TOPLEXIL [Concomitant]
     Route: 065
     Dates: start: 20051228, end: 20060101
  5. COLLU-HEXTRIL [Concomitant]
     Route: 065
     Dates: start: 20051228, end: 20060101

REACTIONS (12)
  - ABDOMINAL PAIN [None]
  - ALANINE AMINOTRANSFERASE INCREASED [None]
  - BLOOD ALKALINE PHOSPHATASE INCREASED [None]
  - COLITIS [None]
  - DIARRHOEA [None]
  - DIZZINESS [None]
  - GAMMA-GLUTAMYLTRANSFERASE INCREASED [None]
  - NAUSEA [None]
  - PLATELET COUNT DECREASED [None]
  - RECTAL HAEMORRHAGE [None]
  - THROMBOCYTOPENIA [None]
  - VOMITING [None]
